FAERS Safety Report 9904192 (Version 1)
Quarter: 2014Q1

REPORT INFORMATION
  Report Type: Other
  Country: US (occurrence: US)
  Receive Date: 20140218
  Receipt Date: 20140218
  Transmission Date: 20141002
  Serious: Yes (Other)
  Sender: FDA-Public Use
  Company Number: US-RANBAXY-2014US-78123

PATIENT
  Age: 13 Year
  Sex: Female

DRUGS (1)
  1. ABSORICA [Suspect]
     Indication: PRODUCT USED FOR UNKNOWN INDICATION
     Dosage: UNK
     Route: 065
     Dates: start: 20131212, end: 20140206

REACTIONS (3)
  - Hallucination [Recovering/Resolving]
  - Crying [Recovering/Resolving]
  - Screaming [Recovering/Resolving]
